FAERS Safety Report 6502742-0 (Version None)
Quarter: 2009Q4

REPORT INFORMATION
  Report Type: 
  Country: None (occurrence: None)
  Receive Date: 20091217
  Receipt Date: 20091210
  Transmission Date: 20100525
  Serious: Yes (Other)
  Sender: FDA-Public Use
  Company Number: US-BRISTOL-MYERS SQUIBB COMPANY-14896005

PATIENT

DRUGS (1)
  1. ORENCIA [Suspect]

REACTIONS (1)
  - MYOCARDITIS [None]
